FAERS Safety Report 9311848 (Version 1)
Quarter: 2013Q2

REPORT INFORMATION
  Report Type: Spontaneous
  Country: AU (occurrence: AU)
  Receive Date: 20130528
  Receipt Date: 20130528
  Transmission Date: 20140414
  Serious: Yes (Other)
  Sender: FDA-Public Use
  Company Number: PHHY2013AU051633

PATIENT
  Age: 21 Year
  Sex: Female

DRUGS (1)
  1. VENLAFAXINE [Suspect]
     Indication: DEPRESSION

REACTIONS (5)
  - Dysphoria [Unknown]
  - Hallucination [Unknown]
  - Restlessness [Unknown]
  - Suicidal ideation [Unknown]
  - Suicide attempt [Unknown]
